FAERS Safety Report 20208396 (Version 1)
Quarter: 2021Q4

REPORT INFORMATION
  Report Type: Spontaneous
  Country: US (occurrence: US)
  Receive Date: 20211220
  Receipt Date: 20211220
  Transmission Date: 20220303
  Serious: Yes (Other)
  Sender: FDA-Public Use
  Company Number: US-UCBSA-2021058919

PATIENT
  Age: 81 Year
  Sex: Male

DRUGS (11)
  1. VIMPAT [Suspect]
     Active Substance: LACOSAMIDE
     Indication: Product used for unknown indication
     Dosage: 100 MILLIGRAM, 2X/DAY (BID)
     Route: 048
  2. VIMPAT [Suspect]
     Active Substance: LACOSAMIDE
     Dosage: 100MG AM AND 50MG PM
     Route: 048
  3. VIMPAT [Suspect]
     Active Substance: LACOSAMIDE
     Dosage: 50 MILLIGRAM, 2X/DAY (BID)
     Route: 048
  4. ATORVASTATIN [Concomitant]
     Active Substance: ATORVASTATIN
     Indication: Product used for unknown indication
  5. BUSPIRONE [Concomitant]
     Active Substance: BUSPIRONE HYDROCHLORIDE
     Indication: Product used for unknown indication
  6. ERGOCALCIFEROL [Concomitant]
     Active Substance: ERGOCALCIFEROL
     Indication: Product used for unknown indication
  7. SERTRALINE [Concomitant]
     Active Substance: SERTRALINE HYDROCHLORIDE
     Indication: Product used for unknown indication
  8. TAMSULOSIN [Concomitant]
     Active Substance: TAMSULOSIN
     Indication: Product used for unknown indication
  9. FAMVIR [Concomitant]
     Active Substance: FAMCICLOVIR
     Indication: Product used for unknown indication
  10. PREDNISONE [Concomitant]
     Active Substance: PREDNISONE
     Indication: Product used for unknown indication
  11. CYCLOPHOSPHAMIDE;DOXORUBICIN;METHOTREXATE;RITUXIMAB;VINCRISTINE [Concomitant]
     Indication: Product used for unknown indication

REACTIONS (22)
  - Orchidectomy [Unknown]
  - Testicular neoplasm [Unknown]
  - Pulmonary hypertension [Unknown]
  - Major depression [Recovering/Resolving]
  - Rotator cuff syndrome [Unknown]
  - Osteoarthritis [Unknown]
  - Delirium [Unknown]
  - Diverticulum [Unknown]
  - Hiatus hernia [Unknown]
  - Bell^s palsy [Unknown]
  - Presyncope [Unknown]
  - Anxiety [Unknown]
  - Balance disorder [Unknown]
  - Fatigue [Unknown]
  - Weight increased [Unknown]
  - Hepatic steatosis [Unknown]
  - Back pain [Unknown]
  - Fall [Unknown]
  - Arthralgia [Unknown]
  - Urinary tract infection [Unknown]
  - Product use issue [Unknown]
  - SARS-CoV-2 test negative [Unknown]

NARRATIVE: CASE EVENT DATE: 20190226
